FAERS Safety Report 8463122-4 (Version None)
Quarter: 2012Q2

REPORT INFORMATION
  Report Type: 
  Country: None (occurrence: None)
  Receive Date: 20120625
  Receipt Date: 20120615
  Transmission Date: 20120825
  Serious: Yes (Other)
  Sender: FDA-Public Use
  Company Number: US-ASTRAZENECA-2012SE37989

PATIENT
  Sex: Female

DRUGS (2)
  1. BRILINTA [Suspect]
     Dosage: BOLUS ONE DOSE
     Route: 048
     Dates: start: 20120605
  2. ASPIRIN [Suspect]
     Route: 065

REACTIONS (3)
  - THROMBOSIS IN DEVICE [None]
  - CHEST PAIN [None]
  - PAIN IN EXTREMITY [None]
